FAERS Safety Report 15297862 (Version 3)
Quarter: 2018Q4

REPORT INFORMATION
  Report Type: Spontaneous
  Country: BR (occurrence: BR)
  Receive Date: 20180820
  Receipt Date: 20181009
  Transmission Date: 20190204
  Serious: Yes (Other)
  Sender: FDA-Public Use
  Company Number: BR-SA-2018SA206684

PATIENT
  Sex: Female
  Weight: 72 kg

DRUGS (5)
  1. CLEXANE [Suspect]
     Active Substance: ENOXAPARIN SODIUM
     Indication: THROMBOSIS
     Dosage: UNK UNK, QD
     Route: 058
     Dates: start: 201801
  2. IRON [Concomitant]
     Active Substance: IRON
     Indication: ANAEMIA
     Dosage: UNK UNK, QD
     Route: 065
     Dates: start: 201805
  3. AAS [Concomitant]
     Active Substance: ASPIRIN
     Dosage: UNK UNK, QD
     Route: 065
     Dates: start: 201801
  4. SYNTHROID [Concomitant]
     Active Substance: LEVOTHYROXINE SODIUM
     Dosage: UNK UNK, QD
     Route: 065
     Dates: start: 201801
  5. OGESTAN [COLECALCIFEROL;FOLIC ACID;IODINE;OMEGA-3 FATTY ACIDS;VITAMIN [Concomitant]
     Dosage: UNK UNK, QD
     Route: 065
     Dates: start: 201801

REACTIONS (4)
  - Diabetes mellitus [Recovered/Resolved]
  - Anaemia [Unknown]
  - Exposure during pregnancy [Unknown]
  - Off label use [Unknown]

NARRATIVE: CASE EVENT DATE: 2018
